FAERS Safety Report 18672135 (Version 8)
Quarter: 2021Q2

REPORT INFORMATION
  Report Type: Spontaneous
  Country: CA (occurrence: CA)
  Receive Date: 20201229
  Receipt Date: 20210526
  Transmission Date: 20210717
  Serious: Yes (Hospitalization, Other)
  Sender: FDA-Public Use
  Company Number: CA-CELLTRION INC.-2020CA028058

PATIENT

DRUGS (10)
  1. IRON [Concomitant]
     Active Substance: IRON
     Dosage: UNK
  2. INFLECTRA [Suspect]
     Active Substance: INFLIXIMAB-DYYB
     Dosage: 5 MG/KG, 0,2,6 WEEKS, EVERY 8 WEEKS)
     Route: 042
     Dates: start: 20200915
  3. HUMIRA [Concomitant]
     Active Substance: ADALIMUMAB
     Dosage: UNK, WEEKLY
     Route: 065
  4. IMURAN [Concomitant]
     Active Substance: AZATHIOPRINE
     Dosage: 225 MG, DAILY
     Route: 065
     Dates: start: 20200730
  5. PREDNISONE. [Concomitant]
     Active Substance: PREDNISONE
     Dosage: 7.5 MG, 1X/DAY (CURRENTLY; 40 MG TAPER DOSE)
     Route: 065
  6. CALCIUM [Concomitant]
     Active Substance: CALCIUM
     Dosage: UNK, DRUG ONGOING, DOSAGE INFO UNKNOWN
     Route: 065
  7. VITAMIN D [ERGOCALCIFEROL] [Concomitant]
     Active Substance: ERGOCALCIFEROL
     Dosage: UNK, DRUG ONGOING, DOSAGE INFO UNKNOWN
     Route: 065
  8. INFLECTRA [Suspect]
     Active Substance: INFLIXIMAB-DYYB
     Indication: CROHN^S DISEASE
     Dosage: 5 MG/KG, 0,2,6 WEEKS, EVERY 8 WEEKS
     Route: 042
     Dates: start: 20200824
  9. INFLECTRA [Suspect]
     Active Substance: INFLIXIMAB-DYYB
     Dosage: 5 MG/KG, 0,2,6 WEEKS, EVERY 8 WEEKS)
     Route: 042
     Dates: start: 20201028, end: 20201028
  10. INFLECTRA [Suspect]
     Active Substance: INFLIXIMAB-DYYB
     Dosage: 5 MG/KG, 0,2,6 WEEKS, EVERY 8 WEEKS)
     Route: 042
     Dates: start: 20210311

REACTIONS (10)
  - Condition aggravated [Not Recovered/Not Resolved]
  - Red cell distribution width increased [Unknown]
  - Mean cell volume decreased [Unknown]
  - Arthralgia [Unknown]
  - Mean cell haemoglobin concentration decreased [Unknown]
  - Anal stenosis [Unknown]
  - Off label use [Unknown]
  - Small intestinal obstruction [Recovered/Resolved]
  - Inappropriate schedule of product administration [Unknown]
  - Serum ferritin decreased [Unknown]

NARRATIVE: CASE EVENT DATE: 20200915
